FAERS Safety Report 4967671-2 (Version None)
Quarter: 2006Q2

REPORT INFORMATION
  Report Type: 
  Country: None (occurrence: None)
  Receive Date: 20060405
  Receipt Date: 20060324
  Transmission Date: 20061013
  Serious: Yes (Hospitalization)
  Sender: FDA-Public Use
  Company Number: 2005160331

PATIENT
  Age: 30 Year
  Sex: Male

DRUGS (4)
  1. NEURONTIN [Suspect]
     Indication: ILL-DEFINED DISORDER
     Dosage: 1200 MG (400 MG, 3 IN 1 D), ORAL
     Route: 048
     Dates: start: 20050101
  2. CLONAZEPAM [Suspect]
     Indication: ILL-DEFINED DISORDER
     Dosage: 1 MG (1 D), ORAL
     Route: 048
  3. SINTROM [Suspect]
     Indication: ILL-DEFINED DISORDER
     Dosage: ORAL
     Route: 048
  4. MESALAMINE [Suspect]
     Indication: ILL-DEFINED DISORDER
     Dosage: 2 GRAM (1 D), ORAL
     Route: 048
     Dates: end: 20051001

REACTIONS (2)
  - EOSINOPHILIA [None]
  - LABORATORY TEST ABNORMAL [None]
